FAERS Safety Report 4867045-9 (Version None)
Quarter: 2005Q4

REPORT INFORMATION
  Report Type: 
  Country: None (occurrence: None)
  Receive Date: 20051222
  Receipt Date: 20051214
  Transmission Date: 20060501
  Serious: Yes (Life-Threatening, Hospitalization)
  Sender: FDA-Public Use
  Company Number: 2005-12-0607

PATIENT
  Age: 67 Year
  Sex: Male

DRUGS (2)
  1. CELESTENE (BETAMETHASONE SODIUM PHOSPHATE) INJECTABLE SOLUTION ^LIKE C [Suspect]
     Dosage: 4MG INTRASPINAL
     Route: 024
     Dates: start: 20051124, end: 20051124
  2. XYLOCAINE [Suspect]
     Dosage: 90MG INTRASPINAL
     Route: 024

REACTIONS (3)
  - CIRCULATORY COLLAPSE [None]
  - MOTOR DYSFUNCTION [None]
  - SENSORY DISTURBANCE [None]
